FAERS Safety Report 12603489 (Version 4)
Quarter: 2016Q3

REPORT INFORMATION
  Report Type: Report from Study
  Country: US (occurrence: US)
  Receive Date: 20160728
  Receipt Date: 20160812
  Transmission Date: 20161109
  Serious: Yes (Other)
  Sender: FDA-Public Use
  Company Number: US-GILEAD-2016-0216181

PATIENT
  Age: 52 Year
  Sex: Male
  Weight: 85.71 kg

DRUGS (18)
  1. UPTRAVI [Suspect]
     Active Substance: SELEXIPAG
     Dosage: 1200 UG, BID
     Route: 065
  2. ADEMPAS [Concomitant]
     Active Substance: RIOCIGUAT
  3. MIRAPEX [Concomitant]
     Active Substance: PRAMIPEXOLE DIHYDROCHLORIDE
  4. UPTRAVI [Suspect]
     Active Substance: SELEXIPAG
     Dosage: 1600 UG, BID
     Route: 048
  5. UPTRAVI [Suspect]
     Active Substance: SELEXIPAG
     Indication: PRODUCT USED FOR UNKNOWN INDICATION
     Dosage: 1000 UG, QD
     Route: 065
     Dates: start: 20160520
  6. CIALIS [Concomitant]
     Active Substance: TADALAFIL
  7. TRAZODONE [Concomitant]
     Active Substance: TRAZODONE HYDROCHLORIDE
  8. BENAZEPRIL [Concomitant]
     Active Substance: BENAZEPRIL HYDROCHLORIDE
  9. SUDAFED [Concomitant]
     Active Substance: PSEUDOEPHEDRINE HYDROCHLORIDE
  10. AMBRISENTAN [Suspect]
     Active Substance: AMBRISENTAN
     Indication: PULMONARY HYPERTENSION
     Dosage: 10 MG, QD
     Route: 065
     Dates: start: 20150324
  11. UPTRAVI [Suspect]
     Active Substance: SELEXIPAG
     Dosage: 1400 UG, QD
     Dates: start: 20160520
  12. CLONAZEPAM. [Concomitant]
     Active Substance: CLONAZEPAM
  13. TRAMADOL. [Concomitant]
     Active Substance: TRAMADOL
  14. AMBRISENTAN [Suspect]
     Active Substance: AMBRISENTAN
     Indication: HIV INFECTION
  15. IBUPROFEN. [Concomitant]
     Active Substance: IBUPROFEN
  16. ALBUTEROL                          /00139501/ [Concomitant]
     Active Substance: ALBUTEROL
  17. LIPITOR [Concomitant]
     Active Substance: ATORVASTATIN CALCIUM
  18. PRAMIPEXOL [Concomitant]
     Active Substance: PRAMIPEXOLE

REACTIONS (19)
  - Insomnia [Unknown]
  - Musculoskeletal pain [Not Recovered/Not Resolved]
  - Feeling cold [Unknown]
  - Dizziness [Unknown]
  - Dysgeusia [Unknown]
  - Weight decreased [Unknown]
  - Pain in extremity [Unknown]
  - Myalgia [Unknown]
  - Muscle fatigue [Unknown]
  - Nasopharyngitis [Recovered/Resolved]
  - Malaise [Unknown]
  - Pain [Unknown]
  - Arthralgia [Unknown]
  - Accidental overdose [Recovered/Resolved]
  - Hypotension [Recovering/Resolving]
  - Dyspnoea [Unknown]
  - Headache [Recovering/Resolving]
  - Decreased appetite [Unknown]
  - Restless legs syndrome [Unknown]

NARRATIVE: CASE EVENT DATE: 20160517
